FAERS Safety Report 18876957 (Version 4)
Quarter: 2021Q2

REPORT INFORMATION
  Report Type: Report from Study
  Country: None (occurrence: BE)
  Receive Date: 20210210
  Receipt Date: 20210608
  Transmission Date: 20210717
  Serious: Yes (Hospitalization)
  Sender: FDA-Public Use
  Company Number: BE-ABBVIE-20K-013-3343405-00

PATIENT
  Age: 65 Year
  Sex: Female
  Weight: 55 kg

DRUGS (14)
  1. DUODOPA [Suspect]
     Active Substance: CARBIDOPA\LEVODOPA
     Dosage: MD 2.4 ML; CD 2.0ML/H; ED 1.0 ML; DURING 16 HRS
     Route: 050
     Dates: start: 20210603
  2. D?CURE [Concomitant]
     Active Substance: CHOLECALCIFEROL
     Indication: PRODUCT USED FOR UNKNOWN INDICATION
  3. DUODOPA [Suspect]
     Active Substance: CARBIDOPA\LEVODOPA
     Indication: PARKINSON^S DISEASE
     Dosage: UNKNOWN DOSAGES
     Route: 050
     Dates: start: 20180618, end: 20181214
  4. DUODOPA [Suspect]
     Active Substance: CARBIDOPA\LEVODOPA
     Dosage: MD=3.5ML, CD=3.3ML/HR DURING 16HRS, ED=1.5ML
     Route: 050
     Dates: start: 20200404
  5. TRAZOLAN [Concomitant]
     Active Substance: TRAZODONE HYDROCHLORIDE
     Indication: PRODUCT USED FOR UNKNOWN INDICATION
  6. AZILECT [Concomitant]
     Active Substance: RASAGILINE MESYLATE
     Indication: PARKINSON^S DISEASE
     Dosage: BEFORE START DUODOPA
     Route: 048
  7. BISOPROLOL [Concomitant]
     Active Substance: BISOPROLOL
     Indication: PRODUCT USED FOR UNKNOWN INDICATION
  8. TEMESTA [Concomitant]
     Indication: PRODUCT USED FOR UNKNOWN INDICATION
  9. SIPRALEXA [Concomitant]
     Active Substance: ESCITALOPRAM OXALATE
     Indication: PRODUCT USED FOR UNKNOWN INDICATION
  10. MOLAXOLEMOLAXOLE [Concomitant]
     Indication: PRODUCT USED FOR UNKNOWN INDICATION
     Dosage: IF NECESSARY
  11. GUTRON [Concomitant]
     Active Substance: MIDODRINE HYDROCHLORIDE
     Indication: PRODUCT USED FOR UNKNOWN INDICATION
  12. DUODOPA [Suspect]
     Active Substance: CARBIDOPA\LEVODOPA
     Dosage: MD=3.5ML, CD=3.4ML/HR DURING 16HRS, ED=2ML,ED=2ML, ND=1.8ML/HR DURING 8HRS
     Route: 050
     Dates: start: 20181214, end: 20200404
  13. AZILECT [Concomitant]
     Active Substance: RASAGILINE MESYLATE
     Dosage: AFTER START DUODOPA
  14. LYRICA [Concomitant]
     Active Substance: PREGABALIN
     Indication: PRODUCT USED FOR UNKNOWN INDICATION

REACTIONS (22)
  - Hypoaesthesia [Unknown]
  - Dystonia [Unknown]
  - Mental disorder [Unknown]
  - Emotional disorder [Unknown]
  - Lumbar spinal stenosis [Unknown]
  - Panic reaction [Unknown]
  - Restlessness [Unknown]
  - Pain [Unknown]
  - Dyskinesia [Recovering/Resolving]
  - Abnormal behaviour [Unknown]
  - Device issue [Recovered/Resolved]
  - Abdominal discomfort [Unknown]
  - Freezing phenomenon [Recovering/Resolving]
  - Polyneuropathy [Not Recovered/Not Resolved]
  - Crying [Unknown]
  - Hallucination [Recovering/Resolving]
  - Gait disturbance [Unknown]
  - Unevaluable event [Unknown]
  - General physical health deterioration [Unknown]
  - Grip strength decreased [Unknown]
  - Muscle spasms [Unknown]
  - Confusional state [Unknown]
